FAERS Safety Report 8757760 (Version 3)
Quarter: 2013Q4

REPORT INFORMATION
  Report Type: Spontaneous
  Country: US (occurrence: US)
  Receive Date: 20120828
  Receipt Date: 20131119
  Transmission Date: 20140711
  Serious: Yes (Hospitalization, Other)
  Sender: FDA-Public Use
  Company Number: US-ASTRAZENECA-2010SE09828

PATIENT
  Age: 72 Year
  Sex: Female
  Weight: 72.1 kg

DRUGS (3)
  1. RHINOCORT AQUA [Suspect]
     Indication: ASTHMA
     Route: 045
  2. NEXIUM [Suspect]
     Route: 048
  3. TOPROL XL [Suspect]
     Indication: CARDIAC DISORDER
     Route: 048

REACTIONS (14)
  - Laryngeal cancer [Unknown]
  - Brain contusion [Unknown]
  - Laceration [Unknown]
  - Fall [Recovering/Resolving]
  - Balance disorder [Unknown]
  - Concussion [Recovered/Resolved]
  - Benign neoplasm [Unknown]
  - Road traffic accident [Unknown]
  - Post-traumatic neck syndrome [Unknown]
  - Activities of daily living impaired [Unknown]
  - Asthma [Unknown]
  - Seasonal allergy [Unknown]
  - Off label use [Unknown]
  - Intentional drug misuse [Not Recovered/Not Resolved]
